FAERS Safety Report 10031209 (Version 2)
Quarter: 2014Q2

REPORT INFORMATION
  Report Type: Spontaneous
  Country: US (occurrence: US)
  Receive Date: 20140324
  Receipt Date: 20140407
  Transmission Date: 20141212
  Serious: Yes (Hospitalization)
  Sender: FDA-Public Use
  Company Number: US-BIOGENIDEC-2014BI024588

PATIENT
  Age: 45 Year
  Sex: Male

DRUGS (4)
  1. TECFIDERA [Suspect]
     Indication: MULTIPLE SCLEROSIS
     Route: 048
     Dates: start: 20140224
  2. TYLENOL 8 HOUR [Concomitant]
  3. BACLOFEN [Concomitant]
  4. ADDERALL [Concomitant]

REACTIONS (2)
  - Pyrexia [Unknown]
  - Urinary tract infection [Unknown]
